FAERS Safety Report 8971734 (Version 1)
Quarter: 2012Q4

REPORT INFORMATION
  Report Type: 
  Country: MY (occurrence: MY)
  Receive Date: 20121217
  Receipt Date: 20121217
  Transmission Date: 20130627
  Serious: Yes (Hospitalization)
  Sender: FDA-Public Use
  Company Number: MY-MYLANLABS-2012S1024618

PATIENT
  Age: 62 Year
  Sex: Female

DRUGS (3)
  1. MOXIFLOXACIN [Suspect]
     Indication: PNEUMONIA
     Route: 048
  2. WARFARIN [Interacting]
     Indication: ATRIAL FIBRILLATION
     Route: 065
  3. WARFARIN [Interacting]
     Indication: MITRAL VALVE REPLACEMENT
     Route: 065

REACTIONS (2)
  - Coagulation time prolonged [Recovered/Resolved]
  - Drug interaction [Recovered/Resolved]
